FAERS Safety Report 21592023 (Version 1)
Quarter: 2022Q4

REPORT INFORMATION
  Report Type: Other
  Country: US (occurrence: None)
  Receive Date: 20221114
  Receipt Date: 20221114
  Transmission Date: 20230113
  Serious: No
  Sender: FDA-Public Use
  Company Number: US-ROCHE-3217795

PATIENT
  Age: 39 Year
  Sex: Female

DRUGS (1)
  1. OCREVUS [Suspect]
     Active Substance: OCRELIZUMAB
     Indication: Multiple sclerosis
     Dosage: PRESCRIBED AS 300MG IV INFUSION DAY 1 + DAY 15, 600MG IV INFUSION EVERY 6 MONTHS
     Route: 042

REACTIONS (3)
  - B-lymphocyte count decreased [Unknown]
  - Streptococcal infection [Unknown]
  - Guttate psoriasis [Unknown]

NARRATIVE: CASE EVENT DATE: 20220731
